FAERS Safety Report 11358782 (Version 1)
Quarter: 2015Q3

REPORT INFORMATION
  Report Type: Spontaneous
  Country: US (occurrence: None)
  Receive Date: 20150807
  Receipt Date: 20150807
  Transmission Date: 20151125
  Serious: Yes (Death)
  Sender: FDA-Public Use
  Company Number: None

PATIENT
  Sex: Male
  Weight: 150 kg

DRUGS (1)
  1. ANDROGEL 1.62% [Suspect]
     Active Substance: TESTOSTERONE
     Indication: BLOOD TESTOSTERONE DECREASED
     Dosage: ON THE SKIN EVERY MORNING
     Route: 061
     Dates: start: 20110101, end: 20131105

REACTIONS (5)
  - Asthenia [None]
  - Completed suicide [None]
  - Insomnia [None]
  - Depression [None]
  - Muscular weakness [None]

NARRATIVE: CASE EVENT DATE: 2011
